FAERS Safety Report 9149066 (Version 3)
Quarter: 2013Q1

REPORT INFORMATION
  Report Type: Spontaneous
  Country: RO (occurrence: None)
  Receive Date: 20130131
  Receipt Date: 20130319
  Transmission Date: 20140127
  Serious: Yes (Life-Threatening, Other)
  Sender: FDA-Public Use
  Company Number: 220196

PATIENT
  Age: 70 Year
  Sex: Female

DRUGS (1)
  1. INNOHEP [Suspect]
     Indication: HAEMODIALYSIS
     Dates: start: 20121215

REACTIONS (12)
  - Anaphylactic shock [None]
  - Dyspnoea [None]
  - Orthopnoea [None]
  - Malaise [None]
  - Crepitations [None]
  - Electrocardiogram ST segment elevation [None]
  - Electrocardiogram T wave inversion [None]
  - Feeling cold [None]
  - Cyanosis [None]
  - Cardiac murmur [None]
  - Cardiopulmonary failure [None]
  - Arrhythmia [None]
